FAERS Safety Report 4710796-7 (Version None)
Quarter: 2005Q3

REPORT INFORMATION
  Report Type: 
  Country: None (occurrence: None)
  Receive Date: 20050705
  Receipt Date: 20050616
  Transmission Date: 20060218
  Serious: Yes (Death)
  Sender: FDA-Public Use
  Company Number: GBWYE750916JUN05

PATIENT
  Age: 50 Year
  Sex: Male

DRUGS (1)
  1. REFACTO [Suspect]
     Dosage: 2500IU EACH TIME ON DEMAND INTRAVENOUS
     Route: 042
     Dates: start: 20050506

REACTIONS (1)
  - INTRA-ABDOMINAL HAEMORRHAGE [None]
